FAERS Safety Report 9267600 (Version 1)
Quarter: 2013Q2

REPORT INFORMATION
  Report Type: Spontaneous
  Country: US (occurrence: US)
  Receive Date: 20130502
  Receipt Date: 20130502
  Transmission Date: 20140414
  Serious: Yes (Hospitalization)
  Sender: FDA-Public Use
  Company Number: US-ALEXION-A201200720

PATIENT
  Age: 19 Year
  Sex: Female

DRUGS (3)
  1. SOLIRIS 300MG [Suspect]
     Indication: HAEMOLYTIC URAEMIC SYNDROME
     Dosage: 900 MG, QW
     Route: 042
     Dates: start: 2012, end: 2012
  2. SOLIRIS 300MG [Suspect]
     Dosage: 1200 MG, Q2W
     Route: 042
     Dates: start: 2012, end: 2012
  3. REGLAN [Suspect]
     Dosage: UNK
     Dates: end: 201204

REACTIONS (2)
  - Muscle spasms [Recovered/Resolved]
  - Pyrexia [Recovered/Resolved]
